FAERS Safety Report 7361256-9 (Version None)
Quarter: 2011Q1

REPORT INFORMATION
  Report Type: 
  Country: None (occurrence: None)
  Receive Date: 20110318
  Receipt Date: 20110316
  Transmission Date: 20110831
  Serious: No
  Sender: FDA-Public Use
  Company Number: MX-ELI_LILLY_AND_COMPANY-MX201103005186

PATIENT
  Age: 32 Year
  Sex: Male

DRUGS (3)
  1. CIALIS [Suspect]
     Dosage: 5 MG, UNKNOWN
  2. ANTIDEPRESSANTS [Concomitant]
  3. CIALIS [Suspect]
     Indication: ERECTILE DYSFUNCTION
     Dosage: 20 MG, UNKNOWN

REACTIONS (3)
  - HYPOTENSION [None]
  - XANTHOPSIA [None]
  - VISION BLURRED [None]
